FAERS Safety Report 13991095 (Version 2)
Quarter: 2017Q4

REPORT INFORMATION
  Report Type: Spontaneous
  Country: US (occurrence: US)
  Receive Date: 20170920
  Receipt Date: 20171027
  Transmission Date: 20180321
  Serious: Yes (Other)
  Sender: FDA-Public Use
  Company Number: US-JNJFOC-20170910405

PATIENT
  Sex: Female
  Weight: 58.97 kg

DRUGS (2)
  1. DURAGESIC [Suspect]
     Active Substance: FENTANYL
     Indication: PRODUCT USED FOR UNKNOWN INDICATION
     Route: 062
  2. FENTANYL. [Suspect]
     Active Substance: FENTANYL
     Indication: PRODUCT USED FOR UNKNOWN INDICATION
     Route: 062

REACTIONS (12)
  - Withdrawal syndrome [Unknown]
  - Malaise [Unknown]
  - Feeling hot [Unknown]
  - Application site erosion [Unknown]
  - Spinal operation [Unknown]
  - Wrong technique in product usage process [Unknown]
  - Weight increased [Unknown]
  - Product quality issue [Unknown]
  - Injury [Unknown]
  - Decreased appetite [Unknown]
  - Hypokinesia [Unknown]
  - Drug ineffective [Unknown]
